FAERS Safety Report 16764572 (Version 1)
Quarter: 2019Q3

REPORT INFORMATION
  Report Type: Spontaneous
  Country: FR (occurrence: FR)
  Receive Date: 20190902
  Receipt Date: 20190902
  Transmission Date: 20191005
  Serious: Yes (Other)
  Sender: FDA-Public Use
  Company Number: PHHY2019FR202662

PATIENT
  Age: 45 Year
  Sex: Male

DRUGS (6)
  1. DIPIPERON [Suspect]
     Active Substance: PIPAMPERONE
     Indication: MENTAL DISORDER
     Dosage: UNK
     Route: 048
  2. DEPAMIDE [Suspect]
     Active Substance: VALPROMIDE
     Indication: MENTAL DISORDER
     Dosage: UNK
     Route: 048
  3. ANDROCUR [Suspect]
     Active Substance: CYPROTERONE ACETATE
     Indication: IMPULSE-CONTROL DISORDER
     Dosage: 100 MG, QD
     Route: 048
     Dates: start: 201311, end: 201907
  4. OLANZAPINE. [Suspect]
     Active Substance: OLANZAPINE
     Indication: MENTAL DISORDER
     Dosage: UNK
     Route: 048
  5. HALDOL DECANOAS [Suspect]
     Active Substance: HALOPERIDOL DECANOATE
     Indication: MENTAL DISORDER
     Dosage: UNK
     Route: 030
  6. DECAPEPTYL (TRIPTORELIN PAMOATE) [Suspect]
     Active Substance: TRIPTORELIN PAMOATE
     Indication: IMPULSE-CONTROL DISORDER
     Dosage: 1 DF, QD
     Route: 030
     Dates: start: 20131001

REACTIONS (1)
  - Meningioma [Not Recovered/Not Resolved]

NARRATIVE: CASE EVENT DATE: 201907
